FAERS Safety Report 6461423 (Version 3)
Quarter: 2019Q1

REPORT INFORMATION
  Report Type: Spontaneous
  Country: FR (occurrence: FR)
  Receive Date: 20071108
  Receipt Date: 20190215
  Transmission Date: 20190418
  Serious: Yes (Disabling)
  Sender: FDA-Public Use
  Company Number: FR-AVENTIS-200713470FR

PATIENT
  Age: 67 Year
  Sex: Male

DRUGS (8)
  1. TAXOTERE [Suspect]
     Active Substance: DOCETAXEL
     Indication: NON-SMALL CELL LUNG CANCER METASTATIC
     Dosage: 6 DF, QCY
     Route: 042
     Dates: start: 20050103, end: 20050419
  2. ZOLEDRONIC ACID [Suspect]
     Active Substance: ZOLEDRONIC ACID
     Indication: LUNG CANCER METASTATIC
     Dosage: 4 MG, Q3W 1X/3 WEEKS
     Route: 042
     Dates: start: 20040602, end: 20040816
  3. SKENAN [Concomitant]
     Active Substance: MORPHINE SULFATE
     Indication: PAIN
     Dosage: UNK UNK, QD UNK, AS REQ^D
  4. ZOLEDRONIC ACID [Suspect]
     Active Substance: ZOLEDRONIC ACID
     Indication: METASTASES TO BONE
     Dosage: UNK
     Route: 042
     Dates: start: 20050503, end: 20060315
  5. PEMETREXED DISODIUM [Suspect]
     Active Substance: PEMETREXED DISODIUM
     Indication: NON-SMALL CELL LUNG CANCER METASTATIC
     Dosage: 17 DF, UNK
     Route: 042
     Dates: start: 20060209, end: 20070131
  6. CLASTOBAN [Suspect]
     Active Substance: CLODRONIC ACID
     Indication: METASTASES TO BONE
     Dosage: UNK
     Route: 048
     Dates: start: 20040816, end: 20050503
  7. TARCEVA [Concomitant]
     Active Substance: ERLOTINIB HYDROCHLORIDE
     Dosage: UNK
     Dates: start: 20050909, end: 20060130
  8. CLASTOBAN [Suspect]
     Active Substance: CLODRONIC ACID
     Indication: LUNG CANCER METASTATIC
     Dosage: 800 MG, BID
     Route: 048
     Dates: start: 20040816, end: 20050127

REACTIONS (1)
  - Osteonecrosis of jaw [Recovering/Resolving]

NARRATIVE: CASE EVENT DATE: 20061206
